FAERS Safety Report 9316448 (Version 1)
Quarter: 2013Q2

REPORT INFORMATION
  Report Type: Spontaneous
  Country: US (occurrence: None)
  Receive Date: 20130528
  Receipt Date: 20130528
  Transmission Date: 20140414
  Serious: No
  Sender: FDA-Public Use
  Company Number: None

PATIENT
  Age: 58 Year
  Sex: Male
  Weight: 122.47 kg

DRUGS (2)
  1. LIPITOR [Suspect]
     Indication: BLOOD CHOLESTEROL
     Dosage: 10 PLUS YEARS
     Route: 048
     Dates: start: 20000501, end: 20130412
  2. LIPITOR [Concomitant]

REACTIONS (3)
  - Arthralgia [None]
  - Arthritis [None]
  - Osteoporosis [None]
